FAERS Safety Report 7594549-0 (Version None)
Quarter: 2011Q3

REPORT INFORMATION
  Report Type: 
  Country: None (occurrence: None)
  Receive Date: 20110707
  Receipt Date: 20110624
  Transmission Date: 20111222
  Serious: Yes (Hospitalization)
  Sender: FDA-Public Use
  Company Number: AU-AMGEN-AUSCT2011033323

PATIENT

DRUGS (4)
  1. PANITUMUMAB [Suspect]
     Indication: OESOPHAGEAL ADENOCARCINOMA
  2. CISPLATIN [Concomitant]
  3. DOCETAXEL [Concomitant]
  4. FLUOROURACIL [Concomitant]

REACTIONS (1)
  - DYSPHAGIA [None]
